FAERS Safety Report 14657037 (Version 1)
Quarter: 2018Q1

REPORT INFORMATION
  Report Type: Spontaneous
  Country: US (occurrence: US)
  Receive Date: 20180319
  Receipt Date: 20180319
  Transmission Date: 20180509
  Serious: No
  Sender: FDA-Public Use
  Company Number: US-TARO-2017TAR00697

PATIENT
  Age: 58 Year
  Sex: Female
  Weight: 48.98 kg

DRUGS (2)
  1. PANTOPRAZOLE [Concomitant]
     Active Substance: PANTOPRAZOLE
     Dosage: UNK
     Dates: start: 2017
  2. NYSTATIN ORAL SUSPENSION USP 100,000 UNITS/ML [Suspect]
     Active Substance: NYSTATIN
     Indication: GASTROINTESTINAL DISORDER
     Dosage: 2 TSP, 4X/DAY
     Route: 048
     Dates: start: 201708, end: 201708

REACTIONS (4)
  - Product quality issue [Recovered/Resolved]
  - Incorrect dose administered [Recovered/Resolved]
  - Product substitution issue [Recovered/Resolved]
  - Diarrhoea [Recovered/Resolved]

NARRATIVE: CASE EVENT DATE: 201708
